FAERS Safety Report 17824860 (Version 1)
Quarter: 2020Q2

REPORT INFORMATION
  Report Type: Spontaneous
  Country: US (occurrence: US)
  Receive Date: 20200526
  Receipt Date: 20200526
  Transmission Date: 20200714
  Serious: No
  Sender: FDA-Public Use
  Company Number: None

PATIENT
  Age: 48 Year
  Sex: Female
  Weight: 128.25 kg

DRUGS (4)
  1. LASIX [Concomitant]
     Active Substance: FUROSEMIDE
  2. ELIQUIS [Concomitant]
     Active Substance: APIXABAN
  3. PLAQUENIL [Suspect]
     Active Substance: HYDROXYCHLOROQUINE SULFATE
     Indication: RHEUMATOID ARTHRITIS
     Dosage: ?          QUANTITY:1 TABLET(S);?
     Dates: start: 20200412
  4. TELENOL [Concomitant]

REACTIONS (7)
  - Product quality issue [None]
  - Product substitution issue [None]
  - Pain [None]
  - Insomnia [None]
  - Fatigue [None]
  - Therapeutic product effect incomplete [None]
  - Impaired work ability [None]

NARRATIVE: CASE EVENT DATE: 20200517
